FAERS Safety Report 8243682-9 (Version None)
Quarter: 2012Q1

REPORT INFORMATION
  Report Type: 
  Country: None (occurrence: None)
  Receive Date: 20120329
  Receipt Date: 20120319
  Transmission Date: 20120608
  Serious: Yes (Other)
  Sender: FDA-Public Use
  Company Number: US-BAYER-2012-027544

PATIENT
  Age: 86 Year
  Sex: Female
  Weight: 68.027 kg

DRUGS (8)
  1. ALEVE (CAPLET) [Suspect]
     Indication: BACK PAIN
     Dosage: 1 DF, PRN, BOTTLE COUNT 100S
     Route: 048
     Dates: start: 20100101
  2. CITRACAL PLUS BONE DENSITY BUILDER [Concomitant]
     Dosage: 1 DF, QD
     Route: 048
  3. XALATAN [Concomitant]
  4. DORZOLAMIDE HCL AND TIMOLOL MALEATE [Concomitant]
  5. FISH OIL [Concomitant]
  6. PRAVACHOL [Concomitant]
  7. AMLODIPINE BESYLATE [Concomitant]
  8. METOPROLOL SUCCINATE [Concomitant]

REACTIONS (3)
  - FEELING HOT [None]
  - SYNCOPE [None]
  - BLOOD PRESSURE DECREASED [None]
